FAERS Safety Report 10272159 (Version 1)
Quarter: 2014Q3

REPORT INFORMATION
  Report Type: Spontaneous
  Country: US (occurrence: US)
  Receive Date: 20140702
  Receipt Date: 20140702
  Transmission Date: 20150326
  Serious: Yes (Other)
  Sender: FDA-Public Use
  Company Number: US-009507513-1406USA013777

PATIENT
  Sex: Female

DRUGS (2)
  1. FOSAMAX [Suspect]
     Active Substance: ALENDRONATE SODIUM
     Dosage: ONCE A WEEK
     Route: 048
  2. ESTROPIPATE. [Suspect]
     Active Substance: ESTROPIPATE
     Dosage: UNK

REACTIONS (5)
  - Hip arthroplasty [Unknown]
  - Hip arthroplasty [Unknown]
  - Leg amputation [Unknown]
  - Arthropathy [Unknown]
  - Osteopenia [Unknown]

NARRATIVE: CASE EVENT DATE: 1981
